FAERS Safety Report 9741768 (Version 1)
Quarter: 2013Q4

REPORT INFORMATION
  Report Type: Spontaneous
  Country: DE (occurrence: DE)
  Receive Date: 20131210
  Receipt Date: 20131210
  Transmission Date: 20140711
  Serious: Yes (Death, Other)
  Sender: FDA-Public Use
  Company Number: DE-ROCHE-1315833

PATIENT
  Age: 88 Year
  Sex: Female

DRUGS (1)
  1. ALTEPLASE [Suspect]
     Indication: ISCHAEMIC STROKE
     Route: 042

REACTIONS (6)
  - Embolic stroke [Fatal]
  - Brain herniation [Fatal]
  - Epilepsy [Unknown]
  - Coma [Unknown]
  - Renal infarct [Unknown]
  - Mesenteric arterial occlusion [Unknown]
